FAERS Safety Report 21375318 (Version 4)
Quarter: 2022Q4

REPORT INFORMATION
  Report Type: Spontaneous
  Country: FR (occurrence: FR)
  Receive Date: 20220926
  Receipt Date: 20221111
  Transmission Date: 20230112
  Serious: Yes (Life-Threatening, Hospitalization, Other)
  Sender: FDA-Public Use
  Company Number: FR-KOREA IPSEN Pharma-2022-26605

PATIENT
  Age: 38 Year
  Sex: Female

DRUGS (1)
  1. BOTULINUM TOXIN TYPE A [Suspect]
     Active Substance: BOTULINUM TOXIN TYPE A
     Indication: Skin cosmetic procedure
     Dosage: DOSE NOT REPORTED
     Route: 065

REACTIONS (2)
  - Face oedema [Recovered/Resolved]
  - Angioedema [Recovered/Resolved]
